FAERS Safety Report 5298663-4 (Version None)
Quarter: 2007Q2

REPORT INFORMATION
  Report Type: 
  Country: None (occurrence: None)
  Receive Date: 20070417
  Receipt Date: 20070405
  Transmission Date: 20071010
  Serious: Yes (Hospitalization, Other)
  Sender: FDA-Public Use
  Company Number: US-JNJFOC-20070400601

PATIENT
  Sex: Female
  Weight: 92.99 kg

DRUGS (7)
  1. REMICADE [Suspect]
  2. REMICADE [Suspect]
     Indication: PSORIASIS
  3. REMICADE [Suspect]
     Indication: PSORIATIC ARTHROPATHY
  4. METHOTREXATE [Concomitant]
     Indication: PSORIATIC ARTHROPATHY
  5. ARAVA [Concomitant]
     Indication: PSORIATIC ARTHROPATHY
  6. FOLIC ACID [Concomitant]
  7. STEROIDS [Concomitant]

REACTIONS (4)
  - FALL [None]
  - HEADACHE [None]
  - JOINT INJURY [None]
  - TYPE IV HYPERSENSITIVITY REACTION [None]
